FAERS Safety Report 14246013 (Version 2)
Quarter: 2018Q1

REPORT INFORMATION
  Report Type: Spontaneous
  Country: US (occurrence: US)
  Receive Date: 20171204
  Receipt Date: 20180124
  Transmission Date: 20180508
  Serious: No
  Sender: FDA-Public Use
  Company Number: US-CELGENEUS-USA-20171109998

PATIENT
  Sex: Male

DRUGS (2)
  1. OTEZLA [Suspect]
     Active Substance: APREMILAST
     Indication: PSORIASIS
     Route: 048
  2. OTEZLA [Suspect]
     Active Substance: APREMILAST
     Route: 048

REACTIONS (2)
  - Back pain [Recovered/Resolved]
  - Psoriasis [Not Recovered/Not Resolved]
